FAERS Safety Report 9579485 (Version 1)
Quarter: 2013Q4

REPORT INFORMATION
  Report Type: Spontaneous
  Country: US (occurrence: US)
  Receive Date: 20131001
  Receipt Date: 20131001
  Transmission Date: 20140711
  Serious: No
  Sender: FDA-Public Use
  Company Number: US-AMGEN-USASP2013027409

PATIENT
  Age: 45 Year
  Sex: Male
  Weight: 73 kg

DRUGS (7)
  1. PROCRIT [Suspect]
     Indication: ANAEMIA
     Dosage: UNK UNK, QWK
     Route: 058
     Dates: start: 20130322
  2. INCIVEK [Suspect]
     Indication: HEPATITIS C
     Dosage: 750 MG, TID
     Route: 048
     Dates: start: 20130111, end: 20130405
  3. PEGASYS [Suspect]
     Dosage: 180 MUG, QWK
     Route: 058
     Dates: start: 20130111
  4. PEGASYS [Suspect]
     Dosage: 135 MUG, QWK
     Route: 058
     Dates: start: 20130301
  5. PEGASYS [Suspect]
     Dosage: 90 MUG, QWK
     Route: 058
     Dates: start: 20130315
  6. RIBASPHERE [Suspect]
     Indication: HEPATITIS C
     Dosage: 600 MG, BID
     Route: 048
     Dates: start: 20130111, end: 20130314
  7. RIBASPHERE [Suspect]
     Dosage: 600 MG, QD
     Route: 048
     Dates: start: 20130318

REACTIONS (1)
  - Weight decreased [Recovering/Resolving]
